FAERS Safety Report 4540388-4 (Version None)
Quarter: 2004Q4

REPORT INFORMATION
  Report Type: 
  Country: None (occurrence: None)
  Receive Date: 20041222
  Receipt Date: 20041214
  Transmission Date: 20050328
  Serious: No
  Sender: FDA-Public Use
  Company Number: BR-2004-036679

PATIENT
  Age: 42 Year
  Sex: Female

DRUGS (2)
  1. BETAFERON (INTERFERON BETA - 1B) INJECTION, 250 UG [Suspect]
     Indication: MULTIPLE SCLEROSIS
     Dosage: 8 MIU, EVERY 2D, SUBCUTANEOUS
     Route: 058
     Dates: start: 19990301, end: 20010101
  2. BETAFERON (INTERFERON BETA - 1B) INJECTION, 250 UG [Suspect]
     Indication: MULTIPLE SCLEROSIS
     Dosage: 8 MIU, EVERY 2D, SUBCUTANEOUS
     Route: 058
     Dates: start: 20010701

REACTIONS (1)
  - BREAST CANCER FEMALE [None]
